FAERS Safety Report 20865762 (Version 1)
Quarter: 2022Q2

REPORT INFORMATION
  Report Type: Spontaneous
  Country: FR (occurrence: FR)
  Receive Date: 20220524
  Receipt Date: 20220524
  Transmission Date: 20220721
  Serious: Yes (Death)
  Sender: FDA-Public Use
  Company Number: None

PATIENT
  Age: 86 Year
  Sex: Male
  Weight: 67 kg

DRUGS (10)
  1. ESCITALOPRAM [Interacting]
     Active Substance: ESCITALOPRAM OXALATE
     Indication: Mixed anxiety and depressive disorder
     Dosage: UNIT DOSE: 10 MG, FREQUENCY TIME : 1 DAY, THERAPY START DATE : ASKU
     Route: 048
     Dates: end: 20220422
  2. CLOPIDOGREL [Interacting]
     Active Substance: CLOPIDOGREL BISULFATE
     Indication: Thrombosis prophylaxis
     Dosage: UNIT DOSE: 75 MG, FREQUENCY TIME :1 DAY, THERAPY START DATE : ASKU
     Route: 048
     Dates: end: 20220420
  3. ALTEPLASE [Interacting]
     Active Substance: ALTEPLASE
     Indication: Thrombolysis
     Dosage: UNIT DOSE: 60.3 MG, FREQUENCY TIME : 1 TOTAL, DURATION : 1 DAY,  POWDER AND SOLVENT FOR SOLUTION FOR
     Route: 041
     Dates: end: 20220420
  4. PERINDOPRIL [Concomitant]
     Active Substance: PERINDOPRIL
     Dosage: UNIT DOSE: 4 MG, FREQUENCY TIME : 1 DAY, THERAPY START DATE : ASKU
     Route: 048
     Dates: end: 20220420
  5. CHOLECALCIFEROL [Concomitant]
     Active Substance: CHOLECALCIFEROL
     Dosage: UNIT DOSE: 0.5 DF, FREQUENCY TIME : 1 MONTH, 80,000 IU, ORAL SOLUTION IN AMPOULE, THERAPY START DATE
     Route: 048
  6. NITROGLYCERIN [Concomitant]
     Active Substance: NITROGLYCERIN
     Dosage: 0.30 MG/DOSE, SOLUTION FOR ORAL SPRAYING, FREQUENCY TIME : 1 DAY, THERAPY START DATE : ASKU
     Route: 060
     Dates: end: 20220420
  7. NEBIVOLOL [Concomitant]
     Active Substance: NEBIVOLOL
     Dosage: UNIT DOSE: 5 MG, FREQUENCY TIME : 1 DAY, THERAPY START DATE : ASKU
     Route: 048
     Dates: end: 20220422
  8. EZETIMIBE [Concomitant]
     Active Substance: EZETIMIBE
     Dosage: UNIT DOSE: 10 MG, FREQUENCY TIME : 1 DAY, THERAPY START DATE : ASKU
     Route: 048
     Dates: end: 20220422
  9. DUTASTERIDE [Concomitant]
     Active Substance: DUTASTERIDE
     Dosage: UNIT DOSE: 0.5 MG, FREQUENCY TIME : 1 DAY, THERAPY START DATE : ASKU
     Route: 048
     Dates: end: 20220420
  10. ATORVASTATIN [Concomitant]
     Active Substance: ATORVASTATIN
     Dosage: UNIT DOSE: 40 MG, THERAPY START DATE : ASKU, FREQUENCY TIME : 1 DAY
     Route: 048
     Dates: end: 20220422

REACTIONS (2)
  - Haemorrhagic transformation stroke [Fatal]
  - Drug interaction [Fatal]

NARRATIVE: CASE EVENT DATE: 20220421
